FAERS Safety Report 6120963-6 (Version None)
Quarter: 2009Q1

REPORT INFORMATION
  Report Type: 
  Country: None (occurrence: None)
  Receive Date: 20090312
  Receipt Date: 20090312
  Transmission Date: 20090719
  Serious: Yes (Other)
  Sender: FDA-Public Use
  Company Number: None

PATIENT
  Sex: Female
  Weight: 81.6475 kg

DRUGS (1)
  1. AUGMENTIN '875' [Suspect]
     Indication: SINUSITIS
     Dosage: 1 TABLET X2 PER DAY/10 DAYS PO
     Route: 048
     Dates: start: 20090227, end: 20090306

REACTIONS (12)
  - ANORECTAL DISCOMFORT [None]
  - CHILLS [None]
  - DISCOMFORT [None]
  - DIZZINESS [None]
  - FALL [None]
  - FATIGUE [None]
  - GENITAL BURNING SENSATION [None]
  - GENITAL PAIN [None]
  - PAIN [None]
  - PROCTALGIA [None]
  - RASH [None]
  - THIRST [None]
